FAERS Safety Report 20090672 (Version 1)
Quarter: 2021Q4

REPORT INFORMATION
  Report Type: Spontaneous
  Country: US (occurrence: None)
  Receive Date: 20211119
  Receipt Date: 20211119
  Transmission Date: 20220303
  Serious: Yes (Hospitalization)
  Sender: FDA-Public Use
  Company Number: None

PATIENT
  Sex: Female
  Weight: 72.7 kg

DRUGS (3)
  1. METHOTREXATE [Suspect]
     Active Substance: METHOTREXATE
  2. PEG-L-ASPARAGINASE (PEGASPARGASE, Oncosppar) [Concomitant]
  3. VINCRISTINE SULFATE [Concomitant]

REACTIONS (16)
  - Abdominal distension [None]
  - Nausea [None]
  - Vomiting [None]
  - Swelling [None]
  - Breath sounds abnormal [None]
  - Gastrointestinal sounds abnormal [None]
  - Oedema peripheral [None]
  - Gastrointestinal inflammation [None]
  - Neutropenic colitis [None]
  - Neutropenic colitis [None]
  - Infection [None]
  - Ascites [None]
  - Pleural effusion [None]
  - Abdominal pain [None]
  - Cough [None]
  - Pyrexia [None]

NARRATIVE: CASE EVENT DATE: 20211117
